APPROVED DRUG PRODUCT: BIAXIN
Active Ingredient: CLARITHROMYCIN
Strength: 187MG/5ML
Dosage Form/Route: FOR SUSPENSION;ORAL
Application: N050698 | Product #003
Applicant: ABBVIE INC
Approved: Sep 30, 1998 | RLD: No | RS: No | Type: DISCN